FAERS Safety Report 4523714-1 (Version None)
Quarter: 2004Q4

REPORT INFORMATION
  Report Type: 
  Country: None (occurrence: None)
  Receive Date: 20041210
  Receipt Date: 20041124
  Transmission Date: 20050328
  Serious: Yes (Life-Threatening, Other)
  Sender: FDA-Public Use
  Company Number: IN-GLAXOSMITHKLINE-B0359959A

PATIENT
  Age: 6 Year
  Sex: Female
  Weight: 16 kg

DRUGS (2)
  1. AUGMENTIN '125' [Suspect]
     Dosage: 425MG THREE TIMES PER DAY
     Route: 042
     Dates: start: 20041115, end: 20041116
  2. AMIKACIN [Concomitant]
     Route: 042

REACTIONS (8)
  - ANAPHYLACTIC REACTION [None]
  - CHILLS [None]
  - HYPOTENSION [None]
  - PULSE PRESSURE DECREASED [None]
  - PYREXIA [None]
  - RESPIRATORY DISTRESS [None]
  - TACHYCARDIA [None]
  - TACHYPNOEA [None]
